FAERS Safety Report 6759570-0 (Version None)
Quarter: 2010Q2

REPORT INFORMATION
  Report Type: 
  Country: None (occurrence: None)
  Receive Date: 20100607
  Receipt Date: 20100524
  Transmission Date: 20101027
  Serious: Yes (Other)
  Sender: FDA-Public Use
  Company Number: CN-MYLANLABS-2010S1009118

PATIENT
  Age: 40 Year
  Sex: Female

DRUGS (4)
  1. AMLODIPINE [Suspect]
     Indication: HYPERTENSION
     Route: 048
  2. MAGNESIUM SULFATE [Interacting]
     Indication: PRE-ECLAMPSIA
     Dosage: LOADING DOSE
     Route: 041
  3. MAGNESIUM SULFATE [Interacting]
     Dosage: INFUSED OVER 10 HOURS; MAINTENANCE DOSE
     Route: 041
  4. LABETALOL HCL [Concomitant]
     Indication: HYPERTENSION
     Route: 065

REACTIONS (2)
  - DRUG INTERACTION [None]
  - NEUROMUSCULAR BLOCKADE [None]
